FAERS Safety Report 7516990-4 (Version None)
Quarter: 2011Q2

REPORT INFORMATION
  Report Type: 
  Country: None (occurrence: None)
  Receive Date: 20110601
  Receipt Date: 20110518
  Transmission Date: 20111010
  Serious: Yes (Other)
  Sender: FDA-Public Use
  Company Number: PHHY2011FR19436

PATIENT
  Sex: Female
  Weight: 57 kg

DRUGS (7)
  1. AFINITOR [Suspect]
     Dosage: 10 MG, DAILY
     Dates: start: 20110214, end: 20110301
  2. LEVOTHYROXINE SODIUM [Concomitant]
     Indication: HYPOTHYROIDISM
     Dosage: 125 UG, DAILY
  3. AFINITOR [Suspect]
     Dosage: 10 MG, QD
     Route: 048
  4. AFINITOR [Suspect]
     Dosage: 10 MG, DAILY
     Dates: start: 20101209, end: 20110124
  5. AFINITOR [Suspect]
     Indication: NEUROENDOCRINE TUMOUR
     Dosage: 10 MG, QD
     Route: 048
  6. COZAAR [Concomitant]
     Indication: HYPERTENSION
     Dosage: 50 MG, DAILY
  7. ATENOLOL [Concomitant]
     Indication: HYPERTENSION
     Dosage: 50 MG, DAILY

REACTIONS (6)
  - CYTOLYTIC HEPATITIS [None]
  - ALANINE AMINOTRANSFERASE INCREASED [None]
  - SMALL INTESTINAL OBSTRUCTION [None]
  - ILEUS [None]
  - ASPARTATE AMINOTRANSFERASE INCREASED [None]
  - TRANSAMINASES INCREASED [None]
